FAERS Safety Report 17868552 (Version 1)
Quarter: 2020Q2

REPORT INFORMATION
  Report Type: Spontaneous
  Country: US (occurrence: US)
  Receive Date: 20200606
  Receipt Date: 20200606
  Transmission Date: 20200714
  Serious: No
  Sender: FDA-Public Use
  Company Number: US-009507513-2006USA001825

PATIENT
  Age: 25 Year
  Sex: Female
  Weight: 133 kg

DRUGS (1)
  1. NEXPLANON [Suspect]
     Active Substance: ETONOGESTREL
     Dosage: 1 DOSAGE FORM
     Route: 059
     Dates: start: 20180921, end: 20200527

REACTIONS (2)
  - Device kink [Recovered/Resolved]
  - Medical device site discomfort [Recovered/Resolved]

NARRATIVE: CASE EVENT DATE: 20200527
